FAERS Safety Report 21350211 (Version 1)
Quarter: 2022Q3

REPORT INFORMATION
  Report Type: Spontaneous
  Country: US (occurrence: None)
  Receive Date: 20220918
  Receipt Date: 20220918
  Transmission Date: 20221026
  Serious: No
  Sender: FDA-Public Use
  Company Number: None

PATIENT
  Age: 50 Year
  Sex: Female

DRUGS (10)
  1. ESTRADIOL [Suspect]
     Active Substance: ESTRADIOL
     Indication: Vulvovaginal dryness
     Dosage: OTHER QUANTITY : 1 GRAM;?OTHER FREQUENCY : TWICE PER WEEK;?
     Route: 067
     Dates: start: 20220828, end: 20220913
  2. amlodypine besylate 5 mg 1 time per day [Concomitant]
  3. omega-3 dha/epa [Concomitant]
  4. MAGNESIUM BISGLYCINATE [Concomitant]
  5. POTASSIUM CITRATE [Concomitant]
     Active Substance: POTASSIUM CITRATE
  6. vitamin D3 (200 iu) [Concomitant]
  7. turmeric + ginger [Concomitant]
  8. HYALURONIC ACID [Concomitant]
     Active Substance: HYALURONIC ACID
  9. COLLAGEN [Concomitant]
     Active Substance: COLLAGEN
  10. plant-based protein powder [Concomitant]

REACTIONS (2)
  - Vulvovaginal discomfort [None]
  - Burning sensation [None]

NARRATIVE: CASE EVENT DATE: 20220829
